FAERS Safety Report 19097361 (Version 1)
Quarter: 2021Q2

REPORT INFORMATION
  Report Type: Spontaneous
  Country: US (occurrence: US)
  Receive Date: 20210406
  Receipt Date: 20210406
  Transmission Date: 20210717
  Serious: Yes (Other)
  Sender: FDA-Public Use
  Company Number: None

PATIENT
  Age: 47 Year
  Sex: Male
  Weight: 121.11 kg

DRUGS (2)
  1. CYMBALTA [Concomitant]
     Active Substance: DULOXETINE HYDROCHLORIDE
  2. ACETAMINOPHEN AND HYDROCODONE BITARTRAATE 325/10 [Suspect]
     Active Substance: ACETAMINOPHEN\HYDROCODONE BITARTRATE
     Indication: PAIN
     Dosage: ?          QUANTITY:180 ;OTHER FREQUENCY:6X A DAY ;?
     Route: 048
     Dates: start: 20201216, end: 20210116

REACTIONS (3)
  - Drug ineffective [None]
  - Pain [None]
  - Illness [None]

NARRATIVE: CASE EVENT DATE: 20201216
